FAERS Safety Report 5205485-9 (Version None)
Quarter: 2006Q4

REPORT INFORMATION
  Report Type: 
  Country: None (occurrence: None)
  Receive Date: 20061027
  Receipt Date: 20060328
  Transmission Date: 20070319
  Serious: Yes (Other)
  Sender: FDA-Public Use
  Company Number: HQWYE567629MAR06

PATIENT
  Age: 44 Year
  Sex: Female
  Weight: 61.29 kg

DRUGS (8)
  1. PREMARIN [Suspect]
     Indication: MENOPAUSE
     Dosage: DOSE VARIED BETWEEN 1.25 MG AND 0.625 MG, ORAL
     Route: 048
     Dates: start: 19900101, end: 20060328
  2. NEXIUM [Concomitant]
  3. TYLENOL [Concomitant]
  4. CALCIUM (CALCIUM) [Concomitant]
  5. BENADRYL [Concomitant]
  6. MULTIVITAMINS (ASCORBIC ACID/ERGOCALCIFEROL/FOLIC ACID/NICOTINAMIDE/PA [Concomitant]
  7. TRICOR [Concomitant]
  8. FISH OIL, HYDROGENATED (FISH OIL, HYDROGENATED) [Concomitant]

REACTIONS (4)
  - DRUG INEFFECTIVE [None]
  - MEDICATION RESIDUE [None]
  - MOOD SWINGS [None]
  - SLEEP DISORDER [None]
